FAERS Safety Report 8924817 (Version 2)
Quarter: 2012Q4

REPORT INFORMATION
  Report Type: 
  Country: US (occurrence: US)
  Receive Date: 20121126
  Receipt Date: 20121219
  Transmission Date: 20130627
  Serious: Yes (Other)
  Sender: FDA-Public Use
  Company Number: US-PFIZER INC-2012293555

PATIENT
  Age: 55 Year
  Sex: Female
  Weight: 74.38 kg

DRUGS (2)
  1. DILANTIN [Suspect]
     Indication: SEIZURES
     Dosage: 100 mg, 3x/day
     Route: 048
  2. DILANTIN [Suspect]
     Dosage: 100 mg one dose, 2x/day
     Route: 048

REACTIONS (4)
  - Tooth injury [Unknown]
  - Tooth loss [Recovered/Resolved with Sequelae]
  - Anxiety [Unknown]
  - Drug ineffective [Unknown]
